FAERS Safety Report 10523467 (Version 1)
Quarter: 2014Q4

REPORT INFORMATION
  Report Type: Spontaneous
  Country: GR (occurrence: GR)
  Receive Date: 20141017
  Receipt Date: 20141017
  Transmission Date: 20150528
  Serious: Yes (Disabling, Other)
  Sender: FDA-Public Use
  Company Number: GR-AMGEN-GRCSP2014079297

PATIENT
  Age: 68 Year
  Weight: 94 kg

DRUGS (4)
  1. ZYLAPOUR [Concomitant]
     Indication: HYPERURICAEMIA
     Dosage: 300 MG, UNK
  2. ONEALFA [Concomitant]
     Active Substance: ALFACALCIDOL
     Indication: ADJUVANT THERAPY
     Dosage: 1 MUG, UNK
  3. PROLIA [Suspect]
     Active Substance: DENOSUMAB
     Indication: OSTEOPOROSIS POSTMENOPAUSAL
     Dosage: 60 MG, Q6MO
     Route: 058
     Dates: start: 20120924
  4. ZANIDIP [Concomitant]
     Active Substance: LERCANIDIPINE HYDROCHLORIDE
     Indication: HYPERTENSION
     Dosage: 10 MG, UNK

REACTIONS (1)
  - Cataract [Not Recovered/Not Resolved]

NARRATIVE: CASE EVENT DATE: 20140820
